FAERS Safety Report 6060771-8 (Version None)
Quarter: 2009Q1

REPORT INFORMATION
  Report Type: 
  Country: None (occurrence: None)
  Receive Date: 20090202
  Receipt Date: 20090121
  Transmission Date: 20090719
  Serious: Yes (Disabling)
  Sender: FDA-Public Use
  Company Number: PHHY2009IT02566

PATIENT
  Sex: Male

DRUGS (5)
  1. ACLASTA [Suspect]
     Indication: OSTEOPOROSIS
     Dosage: 5 MG, ONCE/SINGLE
     Route: 042
     Dates: start: 20081220, end: 20081220
  2. HALCION [Concomitant]
     Indication: INSOMNIA
     Dosage: 250 MCG PER DAY
     Route: 042
  3. LANSOX [Concomitant]
     Dosage: 15 MG FOR 1 MONTH
     Route: 048
  4. CACIT VITAMINE D3 [Concomitant]
     Indication: OSTEOPOROSIS
     Dosage: 500 MG PER DAY
     Route: 048
  5. ENOXAPARIN SODIUM [Concomitant]
     Dosage: 4000 UI
     Route: 058

REACTIONS (1)
  - MYOCARDIAL ISCHAEMIA [None]
